FAERS Safety Report 10090074 (Version 2)
Quarter: 2014Q2

REPORT INFORMATION
  Report Type: Spontaneous
  Country: IT (occurrence: IT)
  Receive Date: 20140421
  Receipt Date: 20140421
  Transmission Date: 20141212
  Serious: Yes (Hospitalization)
  Sender: FDA-Public Use
  Company Number: PHHY2014IT041446

PATIENT
  Age: 83 Year
  Sex: Male

DRUGS (9)
  1. LEVOFLOXACIN [Suspect]
     Indication: ABSCESS LIMB
     Dosage: 500 MG, QD
     Route: 048
     Dates: start: 20140326, end: 20140327
  2. LEVOFLOXACIN [Suspect]
     Indication: HYPERPYREXIA
  3. TAZOCIN [Concomitant]
  4. LANOXIN [Concomitant]
  5. LASIX [Concomitant]
     Dosage: 25 MG, UNK
  6. URBASON [Concomitant]
     Dosage: 40 MG, BID
  7. CARDICOR [Concomitant]
     Dosage: 1.25 MG, UNK
  8. ARIXTRA [Concomitant]
     Dosage: 7.5 MG, UNK
  9. PANTOPRAZOLE [Concomitant]
     Dosage: 20 MG, UNK

REACTIONS (2)
  - Delirium [Recovering/Resolving]
  - Confusional state [Recovering/Resolving]
